FAERS Safety Report 9434877 (Version 1)
Quarter: 2013Q3

REPORT INFORMATION
  Report Type: Spontaneous
  Country: US (occurrence: US)
  Receive Date: 20130801
  Receipt Date: 20130801
  Transmission Date: 20140515
  Serious: Yes (Other)
  Sender: FDA-Public Use
  Company Number: US-ROCHE-1254479

PATIENT
  Sex: 0

DRUGS (4)
  1. BONIVA [Suspect]
     Indication: OSTEOPOROSIS
     Route: 065
  2. BONIVA [Suspect]
     Indication: OSTEITIS DEFORMANS
  3. FOSAMAX [Suspect]
     Indication: OSTEOPOROSIS
     Route: 065
  4. FOSAMAX [Suspect]
     Indication: OSTEITIS DEFORMANS

REACTIONS (3)
  - Osteonecrosis of jaw [Unknown]
  - Injury [Unknown]
  - Anxiety [Unknown]
